FAERS Safety Report 8255574-X (Version None)
Quarter: 2012Q1

REPORT INFORMATION
  Report Type: 
  Country: None (occurrence: None)
  Receive Date: 20120329
  Receipt Date: 20110811
  Transmission Date: 20120608
  Serious: Yes (Hospitalization)
  Sender: FDA-Public Use
  Company Number: GB-023541

PATIENT
  Age: 66 Year
  Sex: Female

DRUGS (12)
  1. AMLODIPINE [Concomitant]
  2. ACETYLSALICYLIC ACID SRT [Concomitant]
  3. (CHLORAMBUCIL) [Suspect]
     Indication: CHRONIC LYMPHOCYTIC LEUKAEMIA
     Dosage: 16 MG
     Route: 048
     Dates: start: 20101105
  4. ACYCLOVIR [Concomitant]
  5. DOXAZOSIN MESYLATE [Concomitant]
  6. BECLOMETHASONE DIPROPIONATE [Concomitant]
  7. (OTHERS) [Concomitant]
  8. (RITUXIMAB) [Suspect]
     Indication: CHRONIC LYMPHOCYTIC LEUKAEMIA
     Dosage: 580 MG PER MONTH
     Route: 042
     Dates: start: 20101105
  9. SODIUM BICARBONATE [Concomitant]
  10. ATENOLOL [Concomitant]
  11. OMEPRAZOLE [Concomitant]
  12. TRIMETHOPRIM + SULFAMETHOXAZOLE [Concomitant]

REACTIONS (5)
  - BLOOD CREATININE INCREASED [None]
  - NEPHRITIC SYNDROME [None]
  - KLEBSIELLA INFECTION [None]
  - CONDITION AGGRAVATED [None]
  - VOMITING [None]
